FAERS Safety Report 13027611 (Version 24)
Quarter: 2018Q3

REPORT INFORMATION
  Report Type: Report from Study
  Country: US (occurrence: US)
  Receive Date: 20161214
  Receipt Date: 20180925
  Transmission Date: 20181010
  Serious: Yes (Other)
  Sender: FDA-Public Use
  Company Number: US-JNJFOC-20160820380

PATIENT
  Age: 77 Year
  Sex: Male

DRUGS (35)
  1. COQ10 [Concomitant]
     Active Substance: UBIDECARENONE
  2. LUTEIN [Concomitant]
     Active Substance: LUTEIN
     Dosage: 40 MG, QD
     Route: 048
  3. TAMSULOSIN [Concomitant]
     Active Substance: TAMSULOSIN
     Dosage: 1 UNIT, QD
     Route: 048
  4. IMBRUVICA [Suspect]
     Active Substance: IBRUTINIB
     Indication: CHRONIC LYMPHOCYTIC LEUKAEMIA
     Route: 048
     Dates: start: 20170403
  5. CALCIUM GLUCONATE. [Concomitant]
     Active Substance: CALCIUM GLUCONATE
  6. COLCHICINE. [Concomitant]
     Active Substance: COLCHICINE
     Dosage: 0.6 MG, QD
  7. MAGNESIUM OXIDE. [Concomitant]
     Active Substance: MAGNESIUM OXIDE
  8. IMBRUVICA [Suspect]
     Active Substance: IBRUTINIB
     Indication: CHRONIC LYMPHOCYTIC LEUKAEMIA
     Route: 048
  9. ALPHA LIPOIC ACID [Concomitant]
     Active Substance: .ALPHA.-LIPOIC ACID
     Dosage: 50 MG, QD
     Route: 048
  10. COMPAZINE [Concomitant]
     Active Substance: PROCHLORPERAZINE MALEATE
     Dosage: 10 MG, QD
     Route: 048
  11. MULTIVITAMINS [Concomitant]
     Active Substance: VITAMINS
     Dosage: 1 UNIT, QD
     Route: 048
  12. IMBRUVICA [Suspect]
     Active Substance: IBRUTINIB
     Indication: CHRONIC LYMPHOCYTIC LEUKAEMIA
     Route: 048
     Dates: start: 20170105, end: 201710
  13. FLAXSEED [Concomitant]
     Active Substance: FLAX SEED
     Dosage: 1300 MG, QD
  14. MSM [Concomitant]
     Active Substance: DIMETHYL SULFONE
     Dosage: 1000 MG, QD
     Route: 048
  15. SAW PALMETTO [Concomitant]
     Active Substance: HERBALS\SAW PALMETTO
     Dosage: 1 UNIT, BID
     Route: 048
  16. VALPROIC ACID. [Concomitant]
     Active Substance: VALPROIC ACID
  17. COENZYME Q10 + CARNITIN [Concomitant]
     Dosage: 100?20 MG, QD
     Route: 048
  18. IMBRUVICA [Suspect]
     Active Substance: IBRUTINIB
     Indication: CHRONIC LYMPHOCYTIC LEUKAEMIA
     Route: 048
     Dates: start: 20160804, end: 20161202
  19. ACETAMINOPHEN. [Concomitant]
     Active Substance: ACETAMINOPHEN
     Dosage: 500 MG, QHS
     Route: 048
  20. TURMERIC [Concomitant]
     Active Substance: HERBALS\TURMERIC
     Dosage: 800 MG, QD
     Route: 048
  21. ZINC. [Concomitant]
     Active Substance: ZINC
  22. LISINOPRIL. [Concomitant]
     Active Substance: LISINOPRIL
     Dosage: 20 MG, QD
     Route: 048
  23. ALLOPURINOL. [Concomitant]
     Active Substance: ALLOPURINOL
     Dosage: 100 MG, QD
     Route: 048
     Dates: start: 20140721
  24. IMBRUVICA [Suspect]
     Active Substance: IBRUTINIB
     Indication: CHRONIC LYMPHOCYTIC LEUKAEMIA
     Route: 048
     Dates: start: 20160805, end: 20161117
  25. IMBRUVICA [Suspect]
     Active Substance: IBRUTINIB
     Indication: CHRONIC LYMPHOCYTIC LEUKAEMIA
     Route: 048
     Dates: start: 20160804, end: 20180603
  26. IMBRUVICA [Suspect]
     Active Substance: IBRUTINIB
     Indication: CHRONIC LYMPHOCYTIC LEUKAEMIA
     Route: 048
     Dates: start: 20161208, end: 2018
  27. CALCIUM CHLORIDE. [Concomitant]
     Active Substance: CALCIUM CHLORIDE
  28. CLARITIN [Concomitant]
     Active Substance: LORATADINE
     Dosage: 10 MG, QD
     Route: 048
  29. ONE A DAY MEN^S [Concomitant]
     Active Substance: VITAMINS
  30. VITAMIN D3 [Concomitant]
     Active Substance: CHOLECALCIFEROL
     Dosage: 2000 UNIT, QD
     Route: 048
  31. LATANOPROST. [Concomitant]
     Active Substance: LATANOPROST
     Dosage: 0.005 %, QHS
  32. CALCIUM W/MAGNESIUM/ZINC [Concomitant]
     Dosage: 3 UNIT, QD
     Route: 048
  33. ASTRAGALUS PROPINQUUS ROOT [Concomitant]
     Dosage: 1000 MG, QD
  34. CYANOCOBALAMIN. [Concomitant]
     Active Substance: CYANOCOBALAMIN
     Dosage: 2 UNIT, QD
     Route: 048
  35. VITAMIN B COMPLEX [Concomitant]
     Active Substance: CYANOCOBALAMIN\DEXPANTHENOL\NIACINAMIDE\PYRIDOXINE HYDROCHLORIDE\RIBOFLAVIN 5^-PHOSPHATE SODIUM\THIAMINE HYDROCHLORIDE\VITAMIN B COMPLEX
     Dosage: 1 UNIT, QD, 50 MG FOLIC ACID

REACTIONS (29)
  - White blood cell count abnormal [Recovered/Resolved]
  - Hypertension [Recovered/Resolved]
  - Insomnia [Recovering/Resolving]
  - Red blood cell count abnormal [Recovered/Resolved]
  - Muscular weakness [Unknown]
  - Anxiety [Unknown]
  - Muscle spasms [Not Recovered/Not Resolved]
  - Neutrophil count decreased [Recovered/Resolved]
  - Bone pain [Recovered/Resolved]
  - Fatigue [Not Recovered/Not Resolved]
  - Contusion [Not Recovered/Not Resolved]
  - Dental operation [Unknown]
  - Squamous cell carcinoma of skin [Not Recovered/Not Resolved]
  - Platelet count abnormal [Recovered/Resolved]
  - Feeling abnormal [Unknown]
  - Dental cleaning [Not Recovered/Not Resolved]
  - Tooth extraction [Unknown]
  - Haemorrhage [Not Recovered/Not Resolved]
  - Post procedural haemorrhage [Recovered/Resolved]
  - Haemoglobin decreased [Unknown]
  - Product blister packaging issue [Unknown]
  - Rash papular [Not Recovered/Not Resolved]
  - Dizziness [Unknown]
  - Dehydration [Unknown]
  - Basal cell carcinoma [Not Recovered/Not Resolved]
  - Actinic keratosis [Unknown]
  - Somnolence [Unknown]
  - Skin mass [Unknown]
  - Increased tendency to bruise [Unknown]

NARRATIVE: CASE EVENT DATE: 2016
